FAERS Safety Report 10050272 (Version 1)
Quarter: 2014Q1

REPORT INFORMATION
  Report Type: Spontaneous
  Country: US (occurrence: None)
  Receive Date: 20140331
  Receipt Date: 20140331
  Transmission Date: 20141002
  Serious: Yes (Disabling)
  Sender: FDA-Public Use
  Company Number: None

PATIENT
  Age: 51 Year
  Sex: Male
  Weight: 131.54 kg

DRUGS (1)
  1. VICTOZA [Suspect]
     Indication: DIABETES MELLITUS
     Dosage: 0.6 ML A DAY  ONCE DAILY  GIVEN INTO/UNDER THE SKIN
     Route: 058
     Dates: start: 20140304, end: 20140328

REACTIONS (13)
  - Abdominal pain upper [None]
  - Diarrhoea [None]
  - Headache [None]
  - Fatigue [None]
  - Nervousness [None]
  - Anxiety [None]
  - Somnolence [None]
  - Depression [None]
  - Pruritus generalised [None]
  - Infection [None]
  - Pain of skin [None]
  - Dysuria [None]
  - Sinus headache [None]
